FAERS Safety Report 5565471-6 (Version None)
Quarter: 2007Q4

REPORT INFORMATION
  Report Type: 
  Country: None (occurrence: None)
  Receive Date: 20071218
  Receipt Date: 20071108
  Transmission Date: 20080405
  Serious: No
  Sender: FDA-Public Use
  Company Number: US-BAUSCH-2007BL004074

PATIENT
  Age: 70 Year
  Sex: Male

DRUGS (2)
  1. NEOMYCIN AND POLYMXIN B SULFATES AND HYDROCORTISONE [Suspect]
     Route: 047
     Dates: start: 20071108, end: 20071108
  2. OPCON-A [Concomitant]
     Indication: EYE ALLERGY

REACTIONS (4)
  - EYE IRRITATION [None]
  - MEDICATION ERROR [None]
  - OCULAR HYPERAEMIA [None]
  - WRONG DRUG ADMINISTERED [None]
